FAERS Safety Report 25154330 (Version 1)
Quarter: 2025Q2

REPORT INFORMATION
  Report Type: Spontaneous
  Country: US (occurrence: US)
  Receive Date: 20250403
  Receipt Date: 20250403
  Transmission Date: 20250717
  Serious: No
  Sender: AJANTA PHARMA
  Company Number: US-AJANTA-2025AJA00043

PATIENT

DRUGS (1)
  1. CHOLESTYRAMINE [Suspect]
     Active Substance: CHOLESTYRAMINE
     Indication: Product used for unknown indication
     Route: 048

REACTIONS (3)
  - Vomiting [Unknown]
  - Product solubility abnormal [Unknown]
  - Product substitution issue [Unknown]
